FAERS Safety Report 13748895 (Version 1)
Quarter: 2017Q3

REPORT INFORMATION
  Report Type: Spontaneous
  Country: US (occurrence: US)
  Receive Date: 20170712
  Receipt Date: 20170712
  Transmission Date: 20171127
  Serious: Yes (Hospitalization)
  Sender: FDA-Public Use
  Company Number: None

PATIENT
  Age: 49 Year
  Sex: Male
  Weight: 82 kg

DRUGS (1)
  1. GAMUNEX-C [Suspect]
     Active Substance: HUMAN IMMUNOGLOBULIN G
     Indication: CHRONIC INFLAMMATORY DEMYELINATING POLYRADICULONEUROPATHY
     Dosage: ?          OTHER DOSE:GM;OTHER FREQUENCY:Q4WK;?
     Route: 042
     Dates: start: 20170220, end: 20170517

REACTIONS (2)
  - Thrombosis [None]
  - Cardiac failure [None]

NARRATIVE: CASE EVENT DATE: 20170526
